FAERS Safety Report 12644532 (Version 1)
Quarter: 2016Q3

REPORT INFORMATION
  Report Type: Spontaneous
  Country: US (occurrence: US)
  Receive Date: 20160811
  Receipt Date: 20160811
  Transmission Date: 20161109
  Serious: Yes (Other)
  Sender: FDA-Public Use
  Company Number: US-BAYER-2016-156210

PATIENT
  Age: 17 Year
  Sex: Female

DRUGS (1)
  1. MIRENA [Suspect]
     Active Substance: LEVONORGESTREL
     Indication: CONTRACEPTION
     Dosage: 20 MCG/24HR, CONT
     Route: 015
     Dates: start: 20160801, end: 20160804

REACTIONS (4)
  - Device dislocation [Recovered/Resolved]
  - Genital haemorrhage [Recovering/Resolving]
  - Abdominal pain lower [Recovered/Resolved]
  - Device issue [None]

NARRATIVE: CASE EVENT DATE: 201608
